FAERS Safety Report 15739420 (Version 1)
Quarter: 2018Q4

REPORT INFORMATION
  Report Type: Spontaneous
  Country: IT (occurrence: IT)
  Receive Date: 20181219
  Receipt Date: 20181219
  Transmission Date: 20190205
  Serious: Yes (Hospitalization)
  Sender: FDA-Public Use
  Company Number: IT-009507513-1812ITA007944

PATIENT
  Age: 68 Year
  Sex: Female

DRUGS (8)
  1. HIZAAR 50MG + 12.5MG COMPRESSE RIVESTITE CON FILM [Suspect]
     Active Substance: HYDROCHLOROTHIAZIDE\LOSARTAN POTASSIUM
     Dosage: UNK
  2. SEQUACOR [Concomitant]
     Active Substance: BISOPROLOL
     Dosage: UNK
  3. TRITTICO [Concomitant]
     Active Substance: TRAZODONE HYDROCHLORIDE
     Dosage: UNK
  4. QUETIAPINE FUMARATE. [Concomitant]
     Active Substance: QUETIAPINE FUMARATE
     Dosage: UNK
  5. CARBOLITHIUM [Suspect]
     Active Substance: LITHIUM CARBONATE
     Dosage: UNK
  6. CANRENOATE POTASSIUM [Interacting]
     Active Substance: CANRENOATE POTASSIUM
     Dosage: UNK
  7. METFORMIN [Concomitant]
     Active Substance: METFORMIN HYDROCHLORIDE
     Dosage: UNK
  8. EUTIROX [Concomitant]
     Active Substance: LEVOTHYROXINE SODIUM
     Dosage: UNK

REACTIONS (4)
  - Toxicity to various agents [Unknown]
  - Language disorder [Unknown]
  - Drug interaction [Unknown]
  - Confusional state [Unknown]

NARRATIVE: CASE EVENT DATE: 20180108
